FAERS Safety Report 6101124-3 (Version None)
Quarter: 2009Q1

REPORT INFORMATION
  Report Type: 
  Country: None (occurrence: None)
  Receive Date: 20090227
  Receipt Date: 20090212
  Transmission Date: 20090719
  Serious: Yes (Death)
  Sender: FDA-Public Use
  Company Number: 1000004864

PATIENT
  Age: 34 Year
  Sex: Male

DRUGS (11)
  1. INDOMETHACIN [Suspect]
     Dosage: ORAL
     Route: 048
  2. COLCHICINE [Suspect]
     Dosage: ORAL
     Route: 048
  3. ATENOLOL [Suspect]
     Dosage: ORAL
     Route: 048
  4. PHENYTOIN [Suspect]
     Dosage: ORAL
     Route: 048
  5. FENOFIBRATE [Suspect]
     Dosage: ORAL
     Route: 048
  6. TRAZODONE HCL [Suspect]
     Dosage: ORAL
     Route: 048
  7. OXYCODONE HCL [Suspect]
     Dosage: ORAL
     Route: 048
  8. GEMFIBROZIL [Suspect]
     Dosage: ORAL
     Route: 048
  9. MIRTAZAPINE [Suspect]
     Dosage: ORAL
     Route: 048
  10. HALOPERIDOL [Suspect]
     Dosage: ORAL
     Route: 048
  11. LOSARTAN [Suspect]
     Dosage: ORAL
     Route: 048

REACTIONS (1)
  - MULTIPLE DRUG OVERDOSE [None]
